FAERS Safety Report 4595925-0 (Version None)
Quarter: 2005Q1

REPORT INFORMATION
  Report Type: 
  Country: None (occurrence: None)
  Receive Date: 20050224
  Receipt Date: 20050224
  Transmission Date: 20050727
  Serious: No
  Sender: FDA-Public Use
  Company Number: None

PATIENT
  Age: 27 Year
  Sex: Female
  Weight: 56.6996 kg

DRUGS (2)
  1. TEQUIN [Suspect]
     Indication: PHARYNGITIS STREPTOCOCCAL
     Dosage: 1 TABLET    1X DAILY   ORAL
     Route: 048
     Dates: start: 20050220, end: 20050222
  2. TEQUIN [Suspect]
     Indication: SYSTEMIC ANTIBACTERIAL THERAPY
     Dosage: 1 TABLET    1X DAILY   ORAL
     Route: 048
     Dates: start: 20050220, end: 20050222

REACTIONS (5)
  - ANXIETY [None]
  - ARTHRALGIA [None]
  - DIARRHOEA [None]
  - PALPITATIONS [None]
  - RESPIRATORY RATE DECREASED [None]
